FAERS Safety Report 6793475-4 (Version None)
Quarter: 2010Q2

REPORT INFORMATION
  Report Type: 
  Country: None (occurrence: None)
  Receive Date: 20100624
  Receipt Date: 20100503
  Transmission Date: 20101027
  Serious: Yes (Other)
  Sender: FDA-Public Use
  Company Number: US-MYLANLABS-2010S1005823

PATIENT
  Age: 48 Year
  Sex: Male
  Weight: 118.84 kg

DRUGS (7)
  1. CLOZAPINE [Suspect]
     Indication: SCHIZOAFFECTIVE DISORDER
     Route: 048
     Dates: start: 20100226, end: 20100311
  2. CLOZAPINE [Suspect]
     Route: 048
     Dates: start: 20100312, end: 20100326
  3. CLOZAPINE [Suspect]
     Route: 048
     Dates: start: 20100312, end: 20100326
  4. ZYPREXA [Concomitant]
  5. PROVIGIL [Concomitant]
  6. DESMOPRESSIN ACETATE [Concomitant]
  7. IMIPRAMINE [Concomitant]

REACTIONS (2)
  - GRANULOCYTOPENIA [None]
  - WHITE BLOOD CELL COUNT DECREASED [None]
